FAERS Safety Report 17742809 (Version 1)
Quarter: 2020Q2

REPORT INFORMATION
  Report Type: Spontaneous
  Country: CA (occurrence: CA)
  Receive Date: 20200505
  Receipt Date: 20200505
  Transmission Date: 20200714
  Serious: Yes (Hospitalization)
  Sender: FDA-Public Use
  Company Number: CA-ROCHE-2592863

PATIENT
  Age: 69 Year
  Sex: Female

DRUGS (3)
  1. ALECENSARO [Suspect]
     Active Substance: ALECTINIB
     Indication: NON-SMALL CELL LUNG CANCER
     Route: 048
  2. FRAGMIN [Suspect]
     Active Substance: DALTEPARIN SODIUM
     Indication: PRODUCT USED FOR UNKNOWN INDICATION
     Route: 042
  3. DOMPERIDONE [Concomitant]
     Active Substance: DOMPERIDONE
     Route: 065

REACTIONS (6)
  - Pigmentation disorder [Unknown]
  - Fall [Unknown]
  - Hair colour changes [Unknown]
  - Constipation [Unknown]
  - Internal haemorrhage [Unknown]
  - Gastrointestinal disorder [Unknown]
